FAERS Safety Report 4465487-7 (Version None)
Quarter: 2004Q4

REPORT INFORMATION
  Report Type: 
  Country: None (occurrence: None)
  Receive Date: 20041001
  Receipt Date: 20040927
  Transmission Date: 20050328
  Serious: Yes (Other)
  Sender: FDA-Public Use
  Company Number: 002799

PATIENT
  Age: 48 Year
  Sex: Female

DRUGS (4)
  1. MEDROXYPROGESTERONE ACETATE [Suspect]
     Dates: start: 19840101, end: 19980101
  2. PROVERA [Suspect]
     Dates: start: 19840101, end: 19980101
  3. PREMARIN [Suspect]
     Dates: start: 19840101, end: 19980101
  4. PREMPRO [Suspect]
     Dates: start: 19840101, end: 19980101

REACTIONS (2)
  - MYOCARDIAL INFARCTION [None]
  - PULMONARY EMBOLISM [None]
